FAERS Safety Report 11419712 (Version 1)
Quarter: 2015Q3

REPORT INFORMATION
  Report Type: Report from Study
  Country: AT (occurrence: AT)
  Receive Date: 20150826
  Receipt Date: 20150826
  Transmission Date: 20151125
  Serious: Yes (Hospitalization, Other)
  Sender: FDA-Public Use
  Company Number: AT-UNITED THERAPEUTICS LTD.-UTC-006945

PATIENT
  Age: 22 Year
  Sex: Female
  Weight: 85 kg

DRUGS (7)
  1. ACETYLSALICYLIC ACID [Concomitant]
     Active Substance: ASPIRIN
     Indication: PULMONARY ARTERIAL HYPERTENSION
  2. UT-15C SR [Suspect]
     Active Substance: TREPROSTINIL DIOLAMINE
     Indication: PULMONARY ARTERIAL HYPERTENSION
     Route: 048
     Dates: start: 20101103, end: 20110207
  3. FUROSEMIDE. [Concomitant]
     Active Substance: FUROSEMIDE
     Indication: PULMONARY ARTERIAL HYPERTENSION
  4. METILDIGOXIN [Concomitant]
     Active Substance: METILDIGOXIN
     Indication: PULMONARY ARTERIAL HYPERTENSION
  5. UT-15C SR [Suspect]
     Active Substance: TREPROSTINIL DIOLAMINE
     Route: 048
     Dates: start: 20110207, end: 201104
  6. WARFARIN [Concomitant]
     Active Substance: WARFARIN
     Indication: PULMONARY ARTERIAL HYPERTENSION
     Route: 048
  7. UT-15C SR [Suspect]
     Active Substance: TREPROSTINIL DIOLAMINE
     Route: 048
     Dates: start: 201104

REACTIONS (1)
  - Supraventricular tachycardia [Recovered/Resolved with Sequelae]

NARRATIVE: CASE EVENT DATE: 20110428
